FAERS Safety Report 12713128 (Version 2)
Quarter: 2016Q4

REPORT INFORMATION
  Report Type: Spontaneous
  Country: US (occurrence: US)
  Receive Date: 20160902
  Receipt Date: 20161024
  Transmission Date: 20170207
  Serious: No
  Sender: FDA-Public Use
  Company Number: US-PFIZER INC-2016410952

PATIENT
  Age: 55 Year
  Sex: Female
  Weight: 103 kg

DRUGS (1)
  1. NICOTROL [Suspect]
     Active Substance: NICOTINE
     Indication: SMOKING CESSATION THERAPY
     Dosage: 10MG, ONE PUFF BY MOUTH UP TO 16 TIMES A DAY
     Route: 055
     Dates: start: 20160816, end: 201608

REACTIONS (6)
  - Drug dose omission [Unknown]
  - Nervousness [Unknown]
  - Emotional disorder [Unknown]
  - Product quality issue [Unknown]
  - Feeling abnormal [Unknown]
  - Panic attack [Unknown]

NARRATIVE: CASE EVENT DATE: 201608
